FAERS Safety Report 23609368 (Version 1)
Quarter: 2024Q1

REPORT INFORMATION
  Report Type: Spontaneous
  Country: DE (occurrence: DE)
  Receive Date: 20240308
  Receipt Date: 20240308
  Transmission Date: 20240409
  Serious: Yes (Other)
  Sender: FDA-Public Use
  Company Number: DE-ABBVIE-5664914

PATIENT
  Age: 39 Year
  Sex: Female

DRUGS (2)
  1. ADALIMUMAB [Suspect]
     Active Substance: ADALIMUMAB\ISOPROPYL ALCOHOL
     Indication: Crohn^s disease
     Route: 058
     Dates: start: 202103, end: 202108
  2. PREDNISOLONE [Concomitant]
     Active Substance: PREDNISOLONE
     Indication: Crohn^s disease
     Dosage: FREQUENCY TEXT: EPISODIC
     Dates: start: 202111, end: 202308

REACTIONS (6)
  - Seizure [Unknown]
  - Tuberculosis [Recovered/Resolved]
  - Mass [Unknown]
  - Terminal ileitis [Unknown]
  - Disseminated tuberculosis [Recovered/Resolved]
  - Crohn^s disease [Recovered/Resolved]

NARRATIVE: CASE EVENT DATE: 20210901
